FAERS Safety Report 9836611 (Version 1)
Quarter: 2013Q4

REPORT INFORMATION
  Report Type: Spontaneous
  Country: US (occurrence: None)
  Receive Date: 20131121
  Receipt Date: 20131121
  Transmission Date: 20140711
  Serious: Yes (Other)
  Sender: FDA-Public Use
  Company Number: 1000047413

PATIENT
  Age: 89 Year
  Sex: Female

DRUGS (10)
  1. TUDORZA PRESSAIR [Suspect]
     Indication: CHRONIC OBSTRUCTIVE PULMONARY DISEASE
     Dosage: 400 MCG, (400 MCG, 1 IN 1 D), RESPIRATORY (INHALATION)?
     Route: 055
     Dates: start: 201304, end: 20130728
  2. TUDORZA PRESSAIR [Suspect]
     Indication: ASTHMA
     Dosage: 400 MCG, (400 MCG, 1 IN 1 D), RESPIRATORY (INHALATION)?
     Route: 055
     Dates: start: 201304, end: 20130728
  3. QVAR (BECLOMETASONE DIPROPIONATE) (BECLOMETASONE DIPROPIONAE) [Concomitant]
  4. PROAIR (SALBUTAMOL SULFATE) [Concomitant]
  5. PREDNISONE (PREDNISONE) (PREDNISONE)? [Concomitant]
  6. COUMADIN (WARFARIN) (WARFARIN) [Concomitant]
  7. OMEPRAZOLE (OMEPRAZOLE) (OMEPRAZOLE)? [Concomitant]
  8. CALCIUM (CALCIUM) (CALCIUM)? [Concomitant]
  9. VITAMIN B12 (VITAMIN B NOS) (VITAMIN B NOS) [Concomitant]
  10. PYRIDOSTIGMINE (PYRIDOSTIGMINE) (60 MILLIGRAM) (PYRIDOSTIGMINE)? [Concomitant]

REACTIONS (1)
  - Pain in extremity [None]
